FAERS Safety Report 18936742 (Version 2)
Quarter: 2021Q1

REPORT INFORMATION
  Report Type: Report from Study
  Country: US (occurrence: US)
  Receive Date: 20210224
  Receipt Date: 20210329
  Transmission Date: 20210420
  Serious: Yes (Other)
  Sender: FDA-Public Use
  Company Number: US-INCYTE CORPORATION-2021IN001160

PATIENT

DRUGS (1)
  1. JAKAFI [Suspect]
     Active Substance: RUXOLITINIB
     Indication: MYELOFIBROSIS
     Dosage: 15 MILLIGRAM, BID
     Route: 048
     Dates: start: 202008

REACTIONS (6)
  - Disease progression [Unknown]
  - Weight increased [Unknown]
  - Memory impairment [Unknown]
  - Basal cell carcinoma [Unknown]
  - Amnesia [Unknown]
  - Myelofibrosis [Unknown]
